FAERS Safety Report 25473549 (Version 6)
Quarter: 2025Q4

REPORT INFORMATION
  Report Type: Spontaneous
  Country: CA (occurrence: CA)
  Receive Date: 20250624
  Receipt Date: 20251006
  Transmission Date: 20260117
  Serious: Yes (Death, Life-Threatening, Hospitalization, Disabling, Congenital Anomaly, Other)
  Sender: ANI
  Company Number: CA-ANIPHARMA-2025-CA-002015

PATIENT
  Age: 43 Year
  Sex: Female
  Weight: 96 kg

DRUGS (63)
  1. CANDESARTAN CILEXETIL [Suspect]
     Active Substance: CANDESARTAN CILEXETIL
     Indication: Rheumatoid arthritis
     Route: 048
  2. CELECOXIB [Suspect]
     Active Substance: CELECOXIB
     Dosage: 2 DOSAGE FORM, QD; 200 MILLIGRAM
  3. CERTOLIZUMAB PEGOL [Suspect]
     Active Substance: CERTOLIZUMAB PEGOL
     Route: 058
  4. DICLOFENAC DIETHYLAMINE [Suspect]
     Active Substance: DICLOFENAC DIETHYLAMINE
  5. DIETARY SUPPLEMENT [Suspect]
     Active Substance: DIETARY SUPPLEMENT
  6. BUPROPION [Concomitant]
     Active Substance: BUPROPION
  7. LISINOPRIL [Concomitant]
     Active Substance: LISINOPRIL
  8. MORPHINE [Concomitant]
     Active Substance: MORPHINE
  9. ZOPICLONE [Concomitant]
     Active Substance: ZOPICLONE
  10. NEOMYCIN [Suspect]
     Active Substance: NEOMYCIN
  11. PANTOPRAZOLE SODIUM [Suspect]
     Active Substance: PANTOPRAZOLE SODIUM
     Dosage: 200 MILLIGRAM
     Route: 048
  12. ACTIFED (PSEUDOEPHEDRINE HYDROCHLORIDE\TRIPROLIDINE HYDROCHLORIDE) [Suspect]
     Active Substance: PSEUDOEPHEDRINE HYDROCHLORIDE\TRIPROLIDINE HYDROCHLORIDE
  13. CETIRIZINE HYDROCHLORIDE [Suspect]
     Active Substance: CETIRIZINE HYDROCHLORIDE
  14. CHOLECALCIFEROL [Suspect]
     Active Substance: CHOLECALCIFEROL
     Dosage: 752.8 MILLIGRAM
  15. ELBASVIR [Suspect]
     Active Substance: ELBASVIR
  16. ACETAMINOPHEN [Suspect]
     Active Substance: ACETAMINOPHEN
     Dosage: 20 MILLIGRAM; 10 MILLIGRAM
  17. CODEINE [Suspect]
     Active Substance: CODEINE
  18. DEXAMETHASONE [Suspect]
     Active Substance: DEXAMETHASONE
  19. RITUXIMAB [Suspect]
     Active Substance: RITUXIMAB
  20. ACETAMINOPHEN\TRAMADOL HYDROCHLORIDE [Suspect]
     Active Substance: ACETAMINOPHEN\TRAMADOL HYDROCHLORIDE
  21. METFORMIN [Suspect]
     Active Substance: METFORMIN HYDROCHLORIDE
  22. CALCIUM CARBONATE [Suspect]
     Active Substance: CALCIUM CARBONATE
     Route: 050
  23. PREDNISONE [Suspect]
     Active Substance: PREDNISONE
     Dosage: 40 MILLIGRAM
  24. TRAMADOL [Suspect]
     Active Substance: TRAMADOL
  25. ACTEMRA [Suspect]
     Active Substance: TOCILIZUMAB
     Dosage: 3011.2 MILLIGRAM; 728 MILLIGRAM; 752 MILLIGRAM; 2912 MILLIGRAM; 20 MILLIGRAM;
  26. DESOXIMETASONE [Suspect]
     Active Substance: DESOXIMETASONE
     Dosage: 25 MILLIGRAM;
  27. DOMPERIDONE MALEATE [Suspect]
     Active Substance: DOMPERIDONE MALEATE
  28. ERENUMAB-AOOE [Suspect]
     Active Substance: ERENUMAB-AOOE
  29. GLUCOSAMINE [Suspect]
     Active Substance: GLUCOSAMINE
  30. HYRIMOZ [Suspect]
     Active Substance: ADALIMUMAB-ADAZ
  31. LAMICTAL [Suspect]
     Active Substance: LAMOTRIGINE
     Dosage: 25 MILLIGRAM
  32. MEGLUMINE [Suspect]
     Active Substance: MEGLUMINE
  33. METHOTREXATE [Suspect]
     Active Substance: METHOTREXATE
     Dosage: 25 MILLIGRAM, QD; 20 MILLIGRAM, 1/WEEK; 25 MILLIGRAM, 1/WEEK; 2 GRAM
     Route: 048
  34. MYOCHRYSINE [Suspect]
     Active Substance: GOLD SODIUM THIOMALATE
  35. NAPROXEN [Suspect]
     Active Substance: NAPROXEN
     Dosage: 1000 MILLIGRAM, QD;
  36. POVIDONE-IODINE [Suspect]
     Active Substance: POVIDONE-IODINE
  37. TRIAMCINOLONE [Suspect]
     Active Substance: TRIAMCINOLONE
  38. VOLTAREN [Suspect]
     Active Substance: DICLOFENAC SODIUM
  39. LISINOPRIL [Concomitant]
     Active Substance: LISINOPRIL
  40. PREDNISOLONE [Concomitant]
     Active Substance: PREDNISOLONE
  41. FISH OIL [Concomitant]
     Active Substance: FISH OIL
  42. BUPROPION [Concomitant]
     Active Substance: BUPROPION
  43. MARVELON [Concomitant]
     Active Substance: DESOGESTREL\ETHINYL ESTRADIOL
  44. PREVACID [Suspect]
     Active Substance: LANSOPRAZOLE
     Dosage: 400 MILLIGRAM
     Route: 048
  45. ALBUTEROL [Suspect]
     Active Substance: ALBUTEROL
  46. CALCIUM LACTATE [Suspect]
     Active Substance: CALCIUM LACTATE
  47. CAFFEINE [Suspect]
     Active Substance: CAFFEINE
     Dosage: 40 MILLIGRAM;
  48. ACETAMINOPHEN\OXYCODONE HYDROCHLORIDE\OXYCODONE TEREPHTHALATE [Suspect]
     Active Substance: ACETAMINOPHEN\OXYCODONE HYDROCHLORIDE\OXYCODONE TEREPHTHALATE
  49. PIROXICAM [Suspect]
     Active Substance: PIROXICAM
     Dosage: 17.86 MILLIGRAM
  50. MELOXICAM [Suspect]
     Active Substance: MELOXICAM
  51. HYDROCORTISONE SODIUM SUCCINATE [Suspect]
     Active Substance: HYDROCORTISONE SODIUM SUCCINATE
  52. ETHINYL ESTRADIOL\NORETHINDRONE [Suspect]
     Active Substance: ETHINYL ESTRADIOL\NORETHINDRONE
  53. EMEND [Suspect]
     Active Substance: APREPITANT
     Dosage: 500 MILLIGRAM
  54. ASACOL [Suspect]
     Active Substance: MESALAMINE
  55. CLIOQUINOL\FLUMETHASONE [Suspect]
     Active Substance: CLIOQUINOL\FLUMETHASONE
     Dosage: 500 MILLIGRAM
  56. TRIAMCINOLONE ACETONIDE [Suspect]
     Active Substance: TRIAMCINOLONE ACETONIDE
  57. MYOCHRYSINE [Suspect]
     Active Substance: GOLD SODIUM THIOMALATE
  58. CETIRIZINE [Suspect]
     Active Substance: CETIRIZINE HYDROCHLORIDE
     Dosage: 10 MILLIGRAM
  59. LANSOPRAZOLE [Suspect]
     Active Substance: LANSOPRAZOLE
     Dosage: 400 MILLIGRAM
     Route: 048
  60. QUETIAPINE FUMARATE [Suspect]
     Active Substance: QUETIAPINE FUMARATE
  61. CALCIUM [Suspect]
     Active Substance: CALCIUM
  62. ACETAMINOPHEN\CODEINE PHOSPHATE [Suspect]
     Active Substance: ACETAMINOPHEN\CODEINE PHOSPHATE
     Dosage: 225 MILLIGRAM; 20 MILLIGRAM; 10 MILLIGRAM
     Route: 048
  63. ACETAMINOPHEN [Suspect]
     Active Substance: ACETAMINOPHEN
     Dosage: 20 MILLIGRAM; 10 MILLIGRAM

REACTIONS (26)
  - Duodenal ulcer perforation [Not Recovered/Not Resolved]
  - Therapy non-responder [Fatal]
  - Maternal exposure timing unspecified [Unknown]
  - Product use in unapproved indication [Recovered/Resolved]
  - Arthropathy [Recovered/Resolved with Sequelae]
  - Anti-cyclic citrullinated peptide antibody [Fatal]
  - Asthma [Fatal]
  - Knee arthroplasty [Fatal]
  - Joint stiffness [Fatal]
  - Joint range of motion decreased [Fatal]
  - Joint dislocation [Fatal]
  - Irritable bowel syndrome [Fatal]
  - Injury [Fatal]
  - Infusion related reaction [Fatal]
  - Infection [Fatal]
  - Impaired healing [Fatal]
  - Hypoaesthesia [Fatal]
  - Hypertension [Fatal]
  - Hypercholesterolaemia [Fatal]
  - Hip arthroplasty [Fatal]
  - Rash pruritic [Not Recovered/Not Resolved]
  - Drug ineffective for unapproved indication [Unknown]
  - Maternal exposure during pregnancy [Recovered/Resolved]
  - Abdominal pain [Fatal]
  - Facet joint syndrome [Fatal]
  - Myositis [Fatal]
